FAERS Safety Report 9413573 (Version 1)
Quarter: 2013Q2

REPORT INFORMATION
  Report Type: Spontaneous
  Country: US (occurrence: None)
  Receive Date: 20130628
  Receipt Date: 20130628
  Transmission Date: 20140414
  Serious: Yes (Hospitalization)
  Sender: FDA-Public Use
  Company Number: 2012P1055945

PATIENT
  Age: 75 Year
  Sex: Female
  Weight: 113.4 kg

DRUGS (9)
  1. COLLAGENASE SANTYL [Suspect]
     Indication: WOUND
     Route: 061
     Dates: start: 20120810
  2. COLLAGENASE SANTYL [Suspect]
     Indication: SKIN ULCER
     Route: 061
     Dates: start: 20120810
  3. LASIX [Suspect]
     Indication: FLUID RETENTION
  4. VANCOMYCIN [Suspect]
  5. FUROSEMIDE (MYLAN) [Concomitant]
  6. BLOOD PRESSURE MEDICATION (UNSPECIFIED) [Concomitant]
  7. VITAMIN B6 [Concomitant]
  8. IRON [Concomitant]
  9. ARANESP [Concomitant]

REACTIONS (6)
  - Application site pain [None]
  - Application site pain [None]
  - Erythema [None]
  - Cellulitis [None]
  - Localised infection [None]
  - Renal disorder [None]
